FAERS Safety Report 21680248 (Version 1)
Quarter: 2022Q4

REPORT INFORMATION
  Report Type: Report from Study
  Country: AU (occurrence: AU)
  Receive Date: 20221205
  Receipt Date: 20221205
  Transmission Date: 20230113
  Serious: Yes (Other)
  Sender: FDA-Public Use
  Company Number: AU-BAYER-2022A165629

PATIENT
  Sex: Male

DRUGS (2)
  1. EYLEA [Suspect]
     Active Substance: AFLIBERCEPT
     Indication: Neovascular age-related macular degeneration
     Dosage: UNK, SOLUTION FOR INJECTION , 40MG/ML
     Route: 031
     Dates: start: 20211220
  2. EYLEA [Suspect]
     Active Substance: AFLIBERCEPT
     Dosage: 1 DF, ONCE, LEFT EYE, SOLUTION FOR INJECTION, 40MG/ML
     Route: 031
     Dates: start: 20221110, end: 20221110

REACTIONS (4)
  - Blindness [Recovering/Resolving]
  - Ocular discomfort [Recovered/Resolved]
  - Metamorphopsia [Recovering/Resolving]
  - Vision blurred [Recovering/Resolving]

NARRATIVE: CASE EVENT DATE: 20221110
